FAERS Safety Report 24752237 (Version 1)
Quarter: 2024Q4

REPORT INFORMATION
  Report Type: Spontaneous
  Country: US (occurrence: US)
  Receive Date: 20241219
  Receipt Date: 20241219
  Transmission Date: 20250115
  Serious: Yes (Other)
  Sender: GLENMARK
  Company Number: US-MLMSERVICE-20241209-PI284945-00138-2

PATIENT

DRUGS (5)
  1. ESTRADIOL [Suspect]
     Active Substance: ESTRADIOL
     Indication: Transgender hormonal therapy
     Dosage: 2 MILLIGRAM, QD (ONCE DAILY )
     Route: 060
  2. ESTRADIOL [Suspect]
     Active Substance: ESTRADIOL
     Dosage: 2 MILLIGRAM, BID (IN 12 HOURS) (TWICE DAILY )
     Route: 060
  3. SPIRONOLACTONE [Concomitant]
     Active Substance: SPIRONOLACTONE
     Indication: Transgender hormonal therapy
     Dosage: 100 MILLIGRAM, BID (IN 12 HOURS) (TWICE DAILY)
     Route: 048
  4. SPIRONOLACTONE [Concomitant]
     Active Substance: SPIRONOLACTONE
     Dosage: 50 MILLIGRAM, BID  (IN 12 HOURS) (TWICE DAILY)
     Route: 048
  5. ACETAMINOPHEN [Concomitant]
     Active Substance: ACETAMINOPHEN
     Indication: Product used for unknown indication
     Dosage: UNK (TWO DOSES IN THE PREVIOUS FOURTEEN DAYS  )
     Route: 065

REACTIONS (1)
  - Drug-induced liver injury [Recovered/Resolved]
